FAERS Safety Report 4761098-4 (Version None)
Quarter: 2005Q3

REPORT INFORMATION
  Report Type: 
  Country: None (occurrence: None)
  Receive Date: 20050905
  Receipt Date: 20050811
  Transmission Date: 20060218
  Serious: Yes (Hospitalization)
  Sender: FDA-Public Use
  Company Number: FR-RB-1961-2005

PATIENT
  Age: 37 Year
  Sex: Male

DRUGS (1)
  1. BUPRENORPHINE HCL [Suspect]
     Indication: DRUG DEPENDENCE
     Dosage: DOSAGE UNKNOWN
     Route: 042

REACTIONS (6)
  - ENTEROBACTER INFECTION [None]
  - HEPATITIS C [None]
  - HIV INFECTION [None]
  - INSOMNIA [None]
  - INTENTIONAL MISUSE [None]
  - INTERVERTEBRAL DISCITIS [None]
